FAERS Safety Report 20017504 (Version 3)
Quarter: 2022Q1

REPORT INFORMATION
  Report Type: Other
  Country: GB (occurrence: GB)
  Receive Date: 20211030
  Receipt Date: 20220120
  Transmission Date: 20220423
  Serious: Yes (Congenital Anomaly, Other)
  Sender: FDA-Public Use
  Company Number: GB-LUPIN PHARMACEUTICALS INC.-2021-21200

PATIENT

DRUGS (4)
  1. SERTRALINE [Suspect]
     Active Substance: SERTRALINE HYDROCHLORIDE
     Indication: Anxiety
     Dosage: 50 MG, QD
     Route: 064
     Dates: start: 20201030
  2. PFIZER-BIONTECH COVID-19 VACCINE [Suspect]
     Active Substance: TOZINAMERAN
     Indication: COVID-19 immunisation
     Dosage: UNK
     Route: 064
     Dates: start: 20210526, end: 20210526
  3. PFIZER-BIONTECH COVID-19 VACCINE [Suspect]
     Active Substance: TOZINAMERAN
     Dosage: UNK
     Route: 064
     Dates: start: 20210727, end: 20210727
  4. FOLIC ACID [Suspect]
     Active Substance: FOLIC ACID
     Indication: Product used for unknown indication
     Dosage: 400 MCG, QD
     Route: 064
     Dates: start: 202010

REACTIONS (12)
  - Foetal exposure during pregnancy [Unknown]
  - Premature baby [Unknown]
  - Death neonatal [Unknown]
  - Hypoplastic left heart syndrome [Unknown]
  - Heterotaxia [Not Recovered/Not Resolved]
  - Double outlet right ventricle [Unknown]
  - Vascular malformation [Unknown]
  - Anomalous pulmonary venous connection [Not Recovered/Not Resolved]
  - Atrioventricular septal defect [Not Recovered/Not Resolved]
  - Atrial septal defect [Not Recovered/Not Resolved]
  - Congenital great vessel anomaly [Not Recovered/Not Resolved]
  - Ventricular hypoplasia [Not Recovered/Not Resolved]

NARRATIVE: CASE EVENT DATE: 20210920
